FAERS Safety Report 7006314-3 (Version None)
Quarter: 2010Q3

REPORT INFORMATION
  Report Type: 
  Country: None (occurrence: None)
  Receive Date: 20100921
  Receipt Date: 20100910
  Transmission Date: 20110219
  Serious: Yes (Hospitalization)
  Sender: FDA-Public Use
  Company Number: JP-AMGEN-KDC434533

PATIENT
  Age: 70 Year
  Sex: Male

DRUGS (2)
  1. VECTIBIX [Suspect]
     Indication: COLORECTAL CANCER
     Route: 041
     Dates: start: 20100720, end: 20100802
  2. ANTIHISTAMINES [Concomitant]
     Indication: PROPHYLAXIS
     Route: 065

REACTIONS (4)
  - DERMATITIS ACNEIFORM [None]
  - HENOCH-SCHONLEIN PURPURA [None]
  - PROTEINURIA [None]
  - RENAL FAILURE ACUTE [None]
